FAERS Safety Report 8544350-6 (Version None)
Quarter: 2012Q3

REPORT INFORMATION
  Report Type: 
  Country: None (occurrence: None)
  Receive Date: 20120717
  Receipt Date: 20120702
  Transmission Date: 20120928
  Serious: Yes (Other)
  Sender: FDA-Public Use
  Company Number: 2011MA003496

PATIENT
  Sex: Female
  Weight: 68.9467 kg

DRUGS (45)
  1. DOXYCYCLINE HCL [Concomitant]
  2. LIBRAX [Concomitant]
  3. PRILOSEC [Concomitant]
  4. SIMVASTATIN [Concomitant]
  5. AMITRIPTLINE HYDROCHLORIDE TAB [Concomitant]
  6. ASPIRIN [Concomitant]
  7. CHLORDIAZEPOXIDE [Concomitant]
  8. ESTRACE [Concomitant]
  9. PREMARIN [Concomitant]
  10. STOOL SOFTENER [Concomitant]
  11. DARVOCET [Concomitant]
  12. FISH OIL [Concomitant]
  13. FLUTICASONE FUROATE [Concomitant]
  14. NEOMYCIN SULFATE TAB [Concomitant]
  15. NEURONTIN [Concomitant]
  16. NIFEDIPINE [Concomitant]
  17. AMLODIPINE [Concomitant]
  18. AZITHROMYCIN [Concomitant]
  19. CEPHALEXIN [Concomitant]
  20. HYDROCHLOROTHIAZIDE [Concomitant]
  21. LISINOPRIL [Concomitant]
  22. ADALAT [Concomitant]
  23. OMEPRAZOLE [Concomitant]
  24. PREVACID [Concomitant]
  25. PROVIGIL [Concomitant]
  26. ZOCOR [Concomitant]
  27. METOCLOPRAMIDE [Suspect]
     Indication: ABDOMINAL DISCOMFORT
     Dosage: 5 MG, QID, PO
     Route: 048
     Dates: start: 20061201, end: 20100201
  28. METOCLOPRAMIDE [Suspect]
     Indication: GASTROOESOPHAGEAL REFLUX DISEASE
     Dosage: 5 MG, QID, PO
     Route: 048
     Dates: start: 20061201, end: 20100201
  29. BENADRYL [Concomitant]
  30. COLACE [Concomitant]
  31. DICYCLOMINE [Concomitant]
  32. FEMARA [Concomitant]
  33. FIBERCON [Concomitant]
  34. GABAPENTIN [Concomitant]
  35. METRONIDAZOLE [Concomitant]
  36. MIRALAX [Concomitant]
  37. NIFEDIAC [Concomitant]
  38. ESTRADIOL [Concomitant]
  39. IBUPROFEN [Concomitant]
  40. LIPITOR [Concomitant]
  41. AMBIEN [Concomitant]
  42. COLYTE [Concomitant]
  43. CYANOCOBALAMIN [Concomitant]
  44. NORVASC [Concomitant]
  45. PROPOXYPHENE HCL [Concomitant]

REACTIONS (38)
  - ECONOMIC PROBLEM [None]
  - ABDOMINAL DISTENSION [None]
  - DECREASED APPETITE [None]
  - DYSPHAGIA [None]
  - ABDOMINAL ADHESIONS [None]
  - HAEMORRHAGE [None]
  - URINARY INCONTINENCE [None]
  - TARDIVE DYSKINESIA [None]
  - ABDOMINAL PAIN [None]
  - DISEASE RECURRENCE [None]
  - ASTHENIA [None]
  - DYSPNOEA [None]
  - GAIT DISTURBANCE [None]
  - INTESTINAL OBSTRUCTION [None]
  - ABDOMINAL TENDERNESS [None]
  - RECTOCELE [None]
  - NAUSEA [None]
  - GASTRITIS [None]
  - BARRETT'S OESOPHAGUS [None]
  - DIARRHOEA [None]
  - INITIAL INSOMNIA [None]
  - APNOEA [None]
  - ARTHRALGIA [None]
  - EXTRAPYRAMIDAL DISORDER [None]
  - ANAL SPHINCTER ATONY [None]
  - ORAL DISCOMFORT [None]
  - WEIGHT DECREASED [None]
  - SOMNOLENCE [None]
  - PAROSMIA [None]
  - HYPERTENSION [None]
  - IRRITABLE BOWEL SYNDROME [None]
  - ABDOMINAL PAIN UPPER [None]
  - CONSTIPATION [None]
  - MIDDLE INSOMNIA [None]
  - CONDITION AGGRAVATED [None]
  - EMOTIONAL DISORDER [None]
  - FLANK PAIN [None]
  - FAECAL INCONTINENCE [None]
